FAERS Safety Report 23636774 (Version 2)
Quarter: 2024Q1

REPORT INFORMATION
  Report Type: Spontaneous
  Country: US (occurrence: US)
  Receive Date: 20240315
  Receipt Date: 20240318
  Transmission Date: 20240410
  Serious: Yes (Hospitalization, Other)
  Sender: FDA-Public Use
  Company Number: US-PFIZER INC-202400065214

PATIENT
  Age: 64 Year
  Sex: Female

DRUGS (1)
  1. PAXLOVID [Suspect]
     Active Substance: NIRMATRELVIR\RITONAVIR
     Indication: COVID-19 treatment
     Dosage: UNK
     Route: 048
     Dates: start: 20240302, end: 20240306

REACTIONS (6)
  - Drug ineffective [Recovering/Resolving]
  - Dysgeusia [Recovering/Resolving]
  - Drug intolerance [Recovering/Resolving]
  - COVID-19 [Unknown]
  - Disease recurrence [Unknown]
  - Illness [Unknown]

NARRATIVE: CASE EVENT DATE: 20240301
